FAERS Safety Report 7804962-1 (Version None)
Quarter: 2011Q4

REPORT INFORMATION
  Report Type: 
  Country: None (occurrence: None)
  Receive Date: 20111010
  Receipt Date: 20110927
  Transmission Date: 20120403
  Serious: Yes (Other)
  Sender: FDA-Public Use
  Company Number: PHHY2011BR86879

PATIENT
  Age: 84 Year
  Sex: Female

DRUGS (8)
  1. SIMVASTATIN [Suspect]
     Dosage: 20 MG, UNK
     Route: 048
  2. ASPIRIN [Concomitant]
     Dosage: 100 MG, QD
  3. INDAPAMIDE [Concomitant]
     Dosage: 1.5 MG, QD
  4. FLUOXETINE [Suspect]
     Dosage: 20 MG, BID
     Route: 048
  5. BALCOR [Concomitant]
     Dosage: 60 MG, TID
  6. LOSARTAN POTASSIUM [Suspect]
     Dosage: 50 MG, QD
     Route: 048
  7. METFORMIN HYDROCHLORIDE [Concomitant]
     Dosage: 850 MG, BID
  8. LEVOTHYROXINE SODIUM [Concomitant]
     Dosage: 100 UG, UNK

REACTIONS (11)
  - LEFT VENTRICULAR DYSFUNCTION [None]
  - LEFT VENTRICULAR HYPERTROPHY [None]
  - CHEST PAIN [None]
  - BLOOD PRESSURE INCREASED [None]
  - BUNDLE BRANCH BLOCK RIGHT [None]
  - DYSPNOEA [None]
  - DIZZINESS [None]
  - HEADACHE [None]
  - TACHYCARDIA [None]
  - DIASTOLIC DYSFUNCTION [None]
  - RENAL CYST [None]
